FAERS Safety Report 15935279 (Version 1)
Quarter: 2019Q1

REPORT INFORMATION
  Report Type: Spontaneous
  Country: US (occurrence: US)
  Receive Date: 20190207
  Receipt Date: 20190207
  Transmission Date: 20190417
  Serious: Yes (Hospitalization)
  Sender: FDA-Public Use
  Company Number: US-BRISTOL-MYERS SQUIBB COMPANY-BMS-2019-010441

PATIENT
  Sex: Male
  Weight: 60.86 kg

DRUGS (1)
  1. OPDIVO [Suspect]
     Active Substance: NIVOLUMAB
     Indication: NEOPLASM MALIGNANT
     Dosage: 480 MG, Q4WK
     Route: 042
     Dates: start: 201710

REACTIONS (2)
  - Product use in unapproved indication [Unknown]
  - Injury [Unknown]
